FAERS Safety Report 22113754 (Version 1)
Quarter: 2023Q1

REPORT INFORMATION
  Report Type: Spontaneous
  Country: NL (occurrence: NL)
  Receive Date: 20230320
  Receipt Date: 20230320
  Transmission Date: 20230418
  Serious: Yes (Hospitalization)
  Sender: FDA-Public Use
  Company Number: None

PATIENT
  Age: 70 Year
  Sex: Female

DRUGS (4)
  1. NAPROXEN [Suspect]
     Active Substance: NAPROXEN
     Indication: Pain
  2. ALECTINIB [Concomitant]
     Active Substance: ALECTINIB
     Indication: Pain
  3. ALECTINIB [Concomitant]
     Active Substance: ALECTINIB
  4. ALECTINIB [Concomitant]
     Active Substance: ALECTINIB

REACTIONS (1)
  - Vasoconstriction [Recovering/Resolving]
